FAERS Safety Report 8378684-5 (Version None)
Quarter: 2012Q2

REPORT INFORMATION
  Report Type: 
  Country: None (occurrence: None)
  Receive Date: 20120522
  Receipt Date: 20120515
  Transmission Date: 20120825
  Serious: Yes (Other)
  Sender: FDA-Public Use
  Company Number: NZ-ABBOTT-12P-118-0935065-00

PATIENT

DRUGS (1)
  1. HUMIRA [Suspect]
     Indication: FISTULA

REACTIONS (1)
  - COLORECTAL CANCER [None]
